FAERS Safety Report 6534519-4 (Version None)
Quarter: 2010Q1

REPORT INFORMATION
  Report Type: 
  Country: None (occurrence: None)
  Receive Date: 20100112
  Receipt Date: 20100105
  Transmission Date: 20100710
  Serious: Yes (Hospitalization, Other)
  Sender: FDA-Public Use
  Company Number: JP-PFIZER INC-2009310709

PATIENT
  Age: 77 Year
  Sex: Male

DRUGS (9)
  1. NORVASC [Suspect]
     Indication: HYPERTENSION
     Dosage: 10 MG/DAY
     Route: 048
  2. ASPIRIN [Concomitant]
     Route: 048
  3. LASIX [Concomitant]
     Route: 048
  4. TENORMIN [Concomitant]
     Route: 048
  5. BASEN [Concomitant]
     Route: 048
  6. CARDENALIN [Concomitant]
     Route: 048
  7. CRESTOR [Concomitant]
     Route: 048
  8. FRANDOL [Concomitant]
  9. ALESION [Concomitant]
     Route: 048

REACTIONS (7)
  - CARDIAC FAILURE [None]
  - CARDIOMEGALY [None]
  - CHRONIC OBSTRUCTIVE PULMONARY DISEASE [None]
  - DYSPNOEA [None]
  - OEDEMA [None]
  - PLEURAL EFFUSION [None]
  - PYREXIA [None]
